FAERS Safety Report 21526604 (Version 1)
Quarter: 2022Q4

REPORT INFORMATION
  Report Type: Spontaneous
  Country: JP (occurrence: JP)
  Receive Date: 20221031
  Receipt Date: 20221031
  Transmission Date: 20230112
  Serious: Yes (Death, Other)
  Sender: FDA-Public Use
  Company Number: JP-TAKEDA-2022TJP076386

PATIENT
  Age: 73 Year
  Sex: Male

DRUGS (1)
  1. NINLARO [Suspect]
     Active Substance: IXAZOMIB CITRATE
     Indication: Plasma cell myeloma
     Dosage: 4 MILLIGRAM, 3/MONTH
     Route: 048
     Dates: start: 20211001

REACTIONS (2)
  - Aspiration [Fatal]
  - Asphyxia [Fatal]

NARRATIVE: CASE EVENT DATE: 20221014
